FAERS Safety Report 4280951-1 (Version None)
Quarter: 2004Q1

REPORT INFORMATION
  Report Type: 
  Country: None (occurrence: None)
  Receive Date: 20040127
  Receipt Date: 20040115
  Transmission Date: 20041129
  Serious: Yes (Other)
  Sender: FDA-Public Use
  Company Number: 103840ISR

PATIENT
  Age: 45 Year
  Sex: Female

DRUGS (3)
  1. METHOTREXATE [Suspect]
     Indication: BREAST CANCER
     Dosage: 40 MG/M2
  2. FLUOROURACIL [Suspect]
     Dosage: 600 MG/M2
  3. CYCLOPHOSPHAMIDE [Suspect]
     Dosage: 600 MG/M2

REACTIONS (1)
  - RAYNAUD'S PHENOMENON [None]
